FAERS Safety Report 8927897 (Version 1)
Quarter: 2012Q4

REPORT INFORMATION
  Report Type: 
  Country: US (occurrence: US)
  Receive Date: 20121127
  Receipt Date: 20121127
  Transmission Date: 20130627
  Serious: Yes (Other)
  Sender: FDA-Public Use
  Company Number: US-BAYER-2012-123281

PATIENT
  Age: 48 Year
  Sex: Male

DRUGS (4)
  1. BETASERON [Suspect]
     Indication: RELAPSING-REMITTING MULTIPLE SCLEROSIS
     Dosage: 4MIU QOD
     Route: 058
     Dates: start: 20121012, end: 201211
  2. BETASERON [Suspect]
     Indication: RELAPSING-REMITTING MULTIPLE SCLEROSIS
     Dosage: 6MIU QOD
     Route: 058
     Dates: start: 20121114, end: 201211
  3. BETASERON [Suspect]
     Indication: RELAPSING-REMITTING MULTIPLE SCLEROSIS
     Dosage: 4 miu, QOD
     Route: 058
     Dates: start: 20121118
  4. ALEVE-D SINUS + COLD [Concomitant]

REACTIONS (6)
  - Headache [Not Recovered/Not Resolved]
  - Vertigo [Recovering/Resolving]
  - Nausea [Recovered/Resolved]
  - Hypertension [Not Recovered/Not Resolved]
  - Heart rate decreased [None]
  - Memory impairment [Recovering/Resolving]
